FAERS Safety Report 5250408-X (Version None)
Quarter: 2007Q1

REPORT INFORMATION
  Report Type: 
  Country: None (occurrence: None)
  Receive Date: 20070228
  Receipt Date: 20060410
  Transmission Date: 20070707
  Serious: No
  Sender: FDA-Public Use
  Company Number: US-GLAXOSMITHKLINE-A0601142A

PATIENT
  Age: 68 Year
  Sex: Female

DRUGS (10)
  1. LAMICTAL [Suspect]
     Indication: PAIN
     Dosage: 25MG PER DAY
     Route: 048
     Dates: start: 20060405
  2. OXYCONTIN [Concomitant]
  3. VICODIN ES [Concomitant]
  4. PRINIVIL [Concomitant]
  5. WELLBUTRIN [Concomitant]
  6. SYNTHROID [Concomitant]
  7. DESYREL [Concomitant]
  8. SOMA [Concomitant]
  9. PROTONIX [Concomitant]
  10. ZYRTEC [Concomitant]

REACTIONS (4)
  - PAIN [None]
  - PRURITUS [None]
  - RASH [None]
  - SWELLING [None]
